FAERS Safety Report 7632396-1 (Version None)
Quarter: 2011Q3

REPORT INFORMATION
  Report Type: 
  Country: None (occurrence: None)
  Receive Date: 20110725
  Receipt Date: 20100824
  Transmission Date: 20111222
  Serious: No
  Sender: FDA-Public Use
  Company Number: US-BRISTOL-MYERS SQUIBB COMPANY-15251036

PATIENT
  Age: 52 Year
  Sex: Female

DRUGS (1)
  1. COUMADIN [Suspect]
     Dosage: 1DF=7.5MG 3DAYS A WEEK + 5MG 4 DAYS A WEEK

REACTIONS (1)
  - DRUG LEVEL BELOW THERAPEUTIC [None]
